FAERS Safety Report 4897191-5 (Version None)
Quarter: 2006Q1

REPORT INFORMATION
  Report Type: 
  Country: None (occurrence: None)
  Receive Date: 20060127
  Receipt Date: 20060116
  Transmission Date: 20060701
  Serious: No
  Sender: FDA-Public Use
  Company Number: 2006-137416-NL

PATIENT
  Age: 20 Year
  Sex: Female

DRUGS (1)
  1. NUVARING [Suspect]
     Dosage: DF VAGINAL
     Route: 067
     Dates: start: 20040101, end: 20051229

REACTIONS (1)
  - CUTANEOUS LUPUS ERYTHEMATOSUS [None]
